FAERS Safety Report 7580896-5 (Version None)
Quarter: 2011Q2

REPORT INFORMATION
  Report Type: 
  Country: None (occurrence: None)
  Receive Date: 20110629
  Receipt Date: 20110608
  Transmission Date: 20111010
  Serious: Yes (Hospitalization)
  Sender: FDA-Public Use
  Company Number: FR-MERCK-1007FRA00090

PATIENT
  Age: 44 Year
  Sex: Male

DRUGS (16)
  1. JANUVIA [Suspect]
     Route: 048
     Dates: start: 20100101, end: 20110305
  2. PRAZEPAM [Concomitant]
     Route: 065
  3. OLOPATADINE HYDROCHLORIDE [Concomitant]
     Route: 065
  4. HERBS (UNSPECIFIED) [Concomitant]
     Route: 065
  5. CETIRIZINE HYDROCHLORIDE [Concomitant]
     Route: 065
  6. BROMAZEPAM [Concomitant]
     Route: 065
  7. DORZOLAMIDE HYDROCHLORIDE [Concomitant]
     Route: 065
  8. PIOGLITAZONE HYDROCHLORIDE [Concomitant]
     Route: 065
     Dates: end: 20100702
  9. GLICLAZIDE [Suspect]
     Indication: TYPE 2 DIABETES MELLITUS
     Route: 048
     Dates: start: 20100601, end: 20100601
  10. JANUVIA [Suspect]
     Route: 048
     Dates: start: 20110101, end: 20110601
  11. JANUVIA [Suspect]
     Indication: TYPE 2 DIABETES MELLITUS
     Route: 048
     Dates: start: 20100703, end: 20101110
  12. MAGNESIUM PIDOLATE [Concomitant]
     Route: 065
     Dates: end: 20100101
  13. LACTULOSE [Concomitant]
     Route: 065
  14. POLYETHYLENE GLYCOL 4000 [Concomitant]
     Route: 065
     Dates: end: 20100101
  15. ALUMINUM HYDROXIDE AND MAGNESIUM TRISILICATE [Concomitant]
     Route: 048
  16. METFORMIN PAMOATE [Concomitant]
     Route: 065

REACTIONS (9)
  - PAIN IN EXTREMITY [None]
  - ABDOMINAL PAIN UPPER [None]
  - ARTHRALGIA [None]
  - CONSTIPATION [None]
  - BURNING SENSATION [None]
  - ANGINA PECTORIS [None]
  - HYPOGLYCAEMIA [None]
  - FATIGUE [None]
  - RASH [None]
